FAERS Safety Report 11714216 (Version 1)
Quarter: 2015Q4

REPORT INFORMATION
  Report Type: Spontaneous
  Country: US (occurrence: US)
  Receive Date: 20151109
  Receipt Date: 20151109
  Transmission Date: 20160304
  Serious: Yes (Death)
  Sender: FDA-Public Use
  Company Number: US-AMGEN-USASP2015113194

PATIENT
  Age: 90 Year
  Sex: Female
  Weight: 49.89 kg

DRUGS (1)
  1. PROLIA [Suspect]
     Active Substance: DENOSUMAB
     Indication: OSTEOPOROSIS POSTMENOPAUSAL
     Dosage: UNK, Q6MO
     Route: 058
     Dates: start: 201310, end: 201408

REACTIONS (5)
  - No therapeutic response [Unknown]
  - Erythema [Unknown]
  - Pruritus generalised [Recovered/Resolved]
  - Eosinophil count increased [Unknown]
  - Death [Fatal]

NARRATIVE: CASE EVENT DATE: 201405
